FAERS Safety Report 7554219-1 (Version None)
Quarter: 2011Q2

REPORT INFORMATION
  Report Type: 
  Country: None (occurrence: None)
  Receive Date: 20110617
  Receipt Date: 20110605
  Transmission Date: 20111010
  Serious: No
  Sender: FDA-Public Use
  Company Number: US-PFIZER INC-2011121945

PATIENT
  Sex: Female
  Weight: 68.027 kg

DRUGS (7)
  1. GABAPENTIN [Concomitant]
     Dosage: UNK
  2. PRENATAL VITAMINS [Concomitant]
     Dosage: UNK
  3. NAPROSYN [Concomitant]
     Indication: ARTHRITIS
     Dosage: UNKNOWN DOSE, TWICE DAILY
  4. RELISTOR [Suspect]
     Indication: BOWEL MOVEMENT IRREGULARITY
     Dosage: 0.6 ML, ALTERNATE DAY
     Route: 058
     Dates: start: 20100101
  5. PREMARIN [Concomitant]
     Indication: HORMONE THERAPY
     Dosage: 0.9 MG, UNK
  6. POLYETHYLENE GLYCOL [Concomitant]
     Indication: FAECES HARD
     Dosage: 17 MG, 1X/DAY
  7. LIDODERM [Concomitant]
     Indication: BACK PAIN
     Dosage: 5 %, UNK

REACTIONS (1)
  - DRUG INEFFECTIVE [None]
